FAERS Safety Report 9350837 (Version 4)
Quarter: 2013Q3

REPORT INFORMATION
  Report Type: Report from Study
  Country: IT (occurrence: IT)
  Receive Date: 20130617
  Receipt Date: 20130805
  Transmission Date: 20140515
  Serious: Yes (Hospitalization)
  Sender: FDA-Public Use
  Company Number: IT-ROCHE-1232192

PATIENT
  Age: 62 Year
  Sex: Male
  Weight: 94 kg

DRUGS (25)
  1. PEG-INTERFERON ALFA 2A [Suspect]
     Indication: HEPATITIS C
     Dosage: ON 29/MAY/2013, SHE RECEIVED THE LAST DOSE.
     Route: 058
     Dates: start: 20121212, end: 20130604
  2. RIBAVIRIN [Suspect]
     Indication: HEPATITIS C
     Route: 048
     Dates: start: 20121212
  3. TELAPREVIR [Suspect]
     Indication: HEPATITIS C
     Route: 065
     Dates: start: 20121212, end: 20130315
  4. CYCLOSPORIN A [Concomitant]
     Route: 065
     Dates: start: 20121213
  5. INDERAL [Concomitant]
     Route: 065
     Dates: end: 20121216
  6. EUTIROX [Concomitant]
  7. DIBASE [Concomitant]
     Route: 065
     Dates: end: 20130103
  8. FOSAVANCE [Concomitant]
     Route: 065
     Dates: end: 20130103
  9. LEVEMIR [Concomitant]
  10. NOVORAPID [Concomitant]
  11. DEURSIL [Concomitant]
  12. TACHIPIRINA [Concomitant]
     Route: 065
     Dates: start: 20121212, end: 20121212
  13. EPREX [Concomitant]
     Route: 065
     Dates: start: 20121218, end: 20130221
  14. GRANULOKINE [Concomitant]
     Route: 065
     Dates: start: 20121231
  15. CIPROFLOXACIN [Concomitant]
     Route: 065
     Dates: start: 20130118, end: 20130125
  16. ZYLORIC [Concomitant]
     Route: 065
     Dates: start: 20130128
  17. ZITHROMAX [Concomitant]
     Route: 065
     Dates: start: 20130222, end: 20130227
  18. FLUBASON [Concomitant]
     Route: 065
     Dates: start: 20130309
  19. ZIRTEC [Concomitant]
  20. CACIT (CALCIUM CARBONATE) [Concomitant]
     Route: 065
     Dates: end: 20130103
  21. TACROLIMUS [Concomitant]
     Route: 065
     Dates: start: 20130601
  22. DELTACORTENE [Concomitant]
  23. CELLCEPT [Concomitant]
  24. ENAPREN [Concomitant]
  25. OMEPRAZOLE [Concomitant]

REACTIONS (1)
  - Liver transplant rejection [Recovering/Resolving]
